FAERS Safety Report 4915901-5 (Version None)
Quarter: 2006Q1

REPORT INFORMATION
  Report Type: 
  Country: None (occurrence: None)
  Receive Date: 20060217
  Receipt Date: 20060209
  Transmission Date: 20060701
  Serious: Yes (Death)
  Sender: FDA-Public Use
  Company Number: US-AVENTIS-200611432US

PATIENT
  Age: 69 Year
  Sex: Female

DRUGS (2)
  1. LANTUS [Suspect]
     Dosage: DOSE UNIT: UNITS
     Route: 051
  2. UNKNOWN DRUG [Concomitant]

REACTIONS (1)
  - CARDIAC FAILURE CONGESTIVE [None]
